FAERS Safety Report 21413433 (Version 1)
Quarter: 2022Q4

REPORT INFORMATION
  Report Type: Spontaneous
  Country: US (occurrence: US)
  Receive Date: 20221006
  Receipt Date: 20221006
  Transmission Date: 20230113
  Serious: No
  Sender: FDA-Public Use
  Company Number: US-ELI_LILLY_AND_COMPANY-US202210000801

PATIENT
  Sex: Female

DRUGS (1)
  1. EMGALITY [Suspect]
     Active Substance: GALCANEZUMAB-GNLM
     Indication: Product used for unknown indication
     Dosage: 120 MG, UNKNOWN
     Route: 065

REACTIONS (5)
  - Renal pain [Unknown]
  - Tinnitus [Unknown]
  - Hypoacusis [Unknown]
  - Dysphonia [Unknown]
  - Blood urine present [Unknown]

NARRATIVE: CASE EVENT DATE: 20220930
